FAERS Safety Report 24359139 (Version 1)
Quarter: 2024Q3

REPORT INFORMATION
  Report Type: Report from Study
  Country: CN (occurrence: CN)
  Receive Date: 20240924
  Receipt Date: 20240924
  Transmission Date: 20241017
  Serious: No
  Sender: Unknown Manufacturer
  Company Number: CN-ROCHE-3525780

PATIENT

DRUGS (4)
  1. PRALSETINIB [Suspect]
     Active Substance: PRALSETINIB
     Indication: Non-small cell lung cancer
     Dosage: 400 MILLIGRAM, QD
     Route: 048
     Dates: start: 202301
  2. PRALSETINIB [Suspect]
     Active Substance: PRALSETINIB
     Dosage: 200 MILLIGRAM, QD
     Route: 048
     Dates: start: 2023
  3. PRALSETINIB [Suspect]
     Active Substance: PRALSETINIB
     Dosage: 400 MILLIGRAM, QD
     Route: 048
     Dates: start: 2023
  4. PRALSETINIB [Suspect]
     Active Substance: PRALSETINIB
     Dosage: 300 MILLIGRAM, QD
     Route: 048

REACTIONS (5)
  - Heart rate increased [Recovering/Resolving]
  - Condition aggravated [Recovering/Resolving]
  - Hypertension [Recovering/Resolving]
  - Myalgia [Recovering/Resolving]
  - Oedema [Recovering/Resolving]

NARRATIVE: CASE EVENT DATE: 20230101
